FAERS Safety Report 14982269 (Version 2)
Quarter: 2018Q2

REPORT INFORMATION
  Report Type: Report from Study
  Country: US (occurrence: US)
  Receive Date: 20180607
  Receipt Date: 20180629
  Transmission Date: 20180711
  Serious: Yes (Hospitalization, Other)
  Sender: FDA-Public Use
  Company Number: US-GILEAD-2018-0339855

PATIENT
  Age: 81 Year
  Sex: Female

DRUGS (1)
  1. AMBRISENTAN [Suspect]
     Active Substance: AMBRISENTAN
     Indication: PRODUCT USED FOR UNKNOWN INDICATION
     Dosage: 5 MG, UNK
     Route: 065
     Dates: start: 20110824

REACTIONS (5)
  - Laceration [Not Recovered/Not Resolved]
  - Fall [Unknown]
  - Renal failure [Not Recovered/Not Resolved]
  - Malaise [Unknown]
  - Cellulitis [Unknown]

NARRATIVE: CASE EVENT DATE: 20180518
